FAERS Safety Report 4890479-3 (Version None)
Quarter: 2005Q4

REPORT INFORMATION
  Report Type: 
  Country: None (occurrence: None)
  Receive Date: 20051214
  Receipt Date: 20050808
  Transmission Date: 20060501
  Serious: No
  Sender: FDA-Public Use
  Company Number: S05-USA-03842-01

PATIENT
  Age: 23 Year
  Sex: Male

DRUGS (3)
  1. CAMPRAL [Suspect]
     Indication: ALCOHOLISM
     Dosage: 666 MG TID PO
     Route: 048
     Dates: start: 20050727, end: 20050805
  2. ZOLOFT [Concomitant]
  3. BUSPAR [Concomitant]

REACTIONS (1)
  - RASH [None]
